FAERS Safety Report 6033160-X (Version None)
Quarter: 2009Q1

REPORT INFORMATION
  Report Type: 
  Country: None (occurrence: None)
  Receive Date: 20090109
  Receipt Date: 20081231
  Transmission Date: 20090719
  Serious: Yes (Other)
  Sender: FDA-Public Use
  Company Number: US-TYCO HEALTHCARE/MALLINCKRODT-T200802163

PATIENT
  Age: 65 Year
  Sex: Male

DRUGS (2)
  1. ULTRA-TECHNEKOW [Suspect]
     Indication: RADIOISOTOPE SCAN
     Dosage: 7 MCI, SINGLE
     Route: 042
     Dates: start: 20081223, end: 20081223
  2. TECHNETIUM 99M SULFUR COLLOID INJ [Suspect]
     Indication: RADIOISOTOPE SCAN
     Dosage: UNK MCI, SINGLE
     Route: 042
     Dates: start: 20081223, end: 20081223

REACTIONS (3)
  - CONVULSION [None]
  - HYPERHIDROSIS [None]
  - LOSS OF CONSCIOUSNESS [None]
